FAERS Safety Report 25912524 (Version 2)
Quarter: 2025Q4

REPORT INFORMATION
  Report Type: Spontaneous
  Country: EU (occurrence: EU)
  Receive Date: 20251013
  Receipt Date: 20251202
  Transmission Date: 20260117
  Serious: Yes (Other)
  Sender: DAIICHI
  Company Number: EU-AstraZeneca-CH-00944716A

PATIENT
  Sex: Female
  Weight: 48 kg

DRUGS (2)
  1. TRASTUZUMAB DERUXTECAN [Suspect]
     Active Substance: TRASTUZUMAB DERUXTECAN
     Indication: Breast cancer
     Dosage: 5.5 MG/KG
     Route: 065
     Dates: start: 20250523
  2. FASLODEX [Suspect]
     Active Substance: FULVESTRANT
     Indication: Product used for unknown indication
     Dosage: UNK
     Route: 058
     Dates: start: 20210930, end: 20220623

REACTIONS (5)
  - Malignant neoplasm progression [Unknown]
  - Renal disorder [Unknown]
  - Red blood cell count decreased [Unknown]
  - Haemoglobin decreased [Unknown]
  - Off label use [Unknown]
